APPROVED DRUG PRODUCT: HYDROCORTISONE BUTYRATE
Active Ingredient: HYDROCORTISONE BUTYRATE
Strength: 0.1%
Dosage Form/Route: LOTION;TOPICAL
Application: A210209 | Product #001 | TE Code: AB
Applicant: LUPIN LTD
Approved: Aug 17, 2018 | RLD: No | RS: Yes | Type: RX